FAERS Safety Report 7573312-0 (Version None)
Quarter: 2011Q2

REPORT INFORMATION
  Report Type: 
  Country: None (occurrence: None)
  Receive Date: 20110620
  Receipt Date: 20110606
  Transmission Date: 20111010
  Serious: Yes (Other)
  Sender: FDA-Public Use
  Company Number: JP-ACCORD-009528

PATIENT
  Age: 21 Year
  Sex: Male

DRUGS (4)
  1. RITUXIMAB(RITUXIMAB) [Suspect]
     Indication: RENAL TRANSPLANT
     Dosage: 50.000MG/M2
  2. METHYLPREDNISOLONE [Suspect]
     Indication: RENAL TRANSPLANT
  3. MYCOPHENOLATE MOFETIL [Suspect]
     Indication: RENAL TRANSPLANT
  4. TACROLIMUS [Suspect]
     Indication: RENAL TRANSPLANT

REACTIONS (19)
  - HAEMOLYTIC ANAEMIA [None]
  - COMPLICATIONS OF TRANSPLANTED KIDNEY [None]
  - KIDNEY TRANSPLANT REJECTION [None]
  - UROSEPSIS [None]
  - DRUG RESISTANCE [None]
  - HAEMODIALYSIS [None]
  - SEPSIS [None]
  - RENAL ARTERY STENOSIS [None]
  - ENTEROCOLITIS BACTERIAL [None]
  - OFF LABEL USE [None]
  - HYPERCOAGULATION [None]
  - THROMBOTIC MICROANGIOPATHY [None]
  - FALL [None]
  - PANCREATITIS ACUTE [None]
  - HYPOPROTEINAEMIA [None]
  - THROMBOCYTOPENIA [None]
  - BLOOD PRESSURE INCREASED [None]
  - DEVICE RELATED INFECTION [None]
  - ASCITES [None]
